FAERS Safety Report 5324100-7 (Version None)
Quarter: 2007Q2

REPORT INFORMATION
  Report Type: 
  Country: None (occurrence: None)
  Receive Date: 20070514
  Receipt Date: 20060424
  Transmission Date: 20071010
  Serious: Yes (Other)
  Sender: FDA-Public Use
  Company Number: A0602996A

PATIENT
  Age: 43 Year
  Sex: Male

DRUGS (13)
  1. RELAFEN [Suspect]
     Indication: DRUG USE FOR UNKNOWN INDICATION
     Dosage: 500MG TWICE PER DAY
     Route: 048
     Dates: start: 19930101
  2. NABUMETONE [Suspect]
     Indication: DRUG USE FOR UNKNOWN INDICATION
     Route: 065
  3. METFORMIN HCL [Concomitant]
  4. AVANDIA [Concomitant]
  5. PROTONIX [Concomitant]
  6. BUPROPION HYDROCHLORIDE [Concomitant]
  7. BENAZEPRIL HYDROCHLORIDE [Concomitant]
  8. STARLIX [Concomitant]
  9. VYTORIN [Concomitant]
  10. TOPROL-XL [Concomitant]
  11. TOPAMAX [Concomitant]
  12. NORTRIPTYLINE HCL [Concomitant]
  13. FLUOXETINE [Concomitant]

REACTIONS (1)
  - HAEMORRHAGE [None]
